FAERS Safety Report 4350242-9 (Version None)
Quarter: 2004Q2

REPORT INFORMATION
  Report Type: 
  Country: None (occurrence: None)
  Receive Date: 20040428
  Receipt Date: 20040413
  Transmission Date: 20050107
  Serious: Yes (Hospitalization)
  Sender: FDA-Public Use
  Company Number: 04P-020-0257319-00

PATIENT
  Age: 20 Year
  Sex: Female

DRUGS (4)
  1. MERIDIA [Suspect]
     Dosage: 10 MG, 2 IN 1 D, PER ORAL
     Route: 048
  2. ALOIN [Concomitant]
  3. ARTICHOKE [Concomitant]
  4. CAVA-CAVA [Concomitant]

REACTIONS (3)
  - PANIC DISORDER [None]
  - PSYCHOTIC DISORDER [None]
  - SCHIZOPHRENIA [None]
